FAERS Safety Report 13504189 (Version 4)
Quarter: 2017Q2

REPORT INFORMATION
  Report Type: Report from Study
  Country: IT (occurrence: IT)
  Receive Date: 20170502
  Receipt Date: 20170519
  Transmission Date: 20170830
  Serious: Yes (Hospitalization)
  Sender: FDA-Public Use
  Company Number: IT-TEVA-764364ACC

PATIENT
  Age: 53 Year
  Sex: Female
  Weight: 89 kg

DRUGS (5)
  1. DIBASE - 25.000 UI/2,5 ML SOLUZIONE ORALE [Suspect]
     Active Substance: CHOLECALCIFEROL
     Indication: DRUG USE DISORDER
     Route: 048
     Dates: start: 20170315, end: 20170315
  2. IBUPROFEN? [Suspect]
     Active Substance: IBUPROFEN
     Indication: DRUG USE DISORDER
     Dosage: 600 MG TOTAL?
     Route: 048
     Dates: start: 20170315, end: 20170315
  3. MOTILIUM [Suspect]
     Active Substance: DOMPERIDONE
     Indication: DRUG USE DISORDER
     Route: 048
     Dates: start: 20170315, end: 20170315
  4. LENTOKALIUM - 600 MG CAPSULE RIGIDE - TEOFARMA S.R.L. [Suspect]
     Active Substance: POTASSIUM CHLORIDE
     Indication: DRUG USE DISORDER
     Route: 048
     Dates: start: 20170315, end: 20170315
  5. ANSIOLIN - 0,5% GOCCE ORALI, SOLUZIONE - ALMIRALL S.P.A. [Suspect]
     Active Substance: DIAZEPAM
     Indication: DRUG USE DISORDER
     Route: 048
     Dates: start: 20170315, end: 20170315

REACTIONS (3)
  - Sopor [Recovered/Resolved]
  - Drug use disorder [Recovered/Resolved]
  - Intentional self-injury [Recovered/Resolved]

NARRATIVE: CASE EVENT DATE: 20170315
